FAERS Safety Report 12787796 (Version 4)
Quarter: 2016Q4

REPORT INFORMATION
  Report Type: Spontaneous
  Country: GR (occurrence: GR)
  Receive Date: 20160928
  Receipt Date: 20161121
  Transmission Date: 20170207
  Serious: Yes (Hospitalization, Other)
  Sender: FDA-Public Use
  Company Number: GR-UCBSA-2016036276

PATIENT
  Age: 42 Year
  Sex: Female
  Weight: 93 kg

DRUGS (5)
  1. CIMZIA [Suspect]
     Active Substance: CERTOLIZUMAB PEGOL
     Indication: PSORIATIC ARTHROPATHY
     Dosage: 200 MG, EV 2 WEEKS(QOW)
     Dates: start: 20150519
  2. CYMBALTA [Suspect]
     Active Substance: DULOXETINE HYDROCHLORIDE
     Indication: FIBROMYALGIA
     Dosage: 60 MG, ONCE DAILY (QD)
     Route: 048
     Dates: start: 20150626
  3. METHOTREXATE PFIZER [Suspect]
     Active Substance: METHOTREXATE
     Indication: PSORIATIC ARTHROPATHY
     Dosage: 12.5 MG, WEEKLY (QW)
     Route: 048
     Dates: start: 201407
  4. METHOTREXATE PFIZER [Suspect]
     Active Substance: METHOTREXATE
     Indication: SPONDYLITIS
  5. CYMBALTA [Suspect]
     Active Substance: DULOXETINE HYDROCHLORIDE
     Indication: PSORIATIC ARTHROPATHY

REACTIONS (3)
  - Anal fissure [Unknown]
  - Haematochezia [Recovered/Resolved]
  - Intestinal haemorrhage [Recovered/Resolved]

NARRATIVE: CASE EVENT DATE: 2015
